FAERS Safety Report 5536824-7 (Version None)
Quarter: 2007Q4

REPORT INFORMATION
  Report Type: 
  Country: None (occurrence: None)
  Receive Date: 20071206
  Receipt Date: 20070326
  Transmission Date: 20080405
  Serious: Yes (Hospitalization)
  Sender: FDA-Public Use
  Company Number: US-AMGEN-STX214874

PATIENT
  Sex: Female

DRUGS (10)
  1. ENBREL [Suspect]
     Indication: RHEUMATOID ARTHRITIS
     Route: 058
     Dates: start: 20030727
  2. METHOTREXATE [Suspect]
     Route: 048
     Dates: start: 19980101
  3. PREDNISONE TAB [Suspect]
  4. FLONASE [Concomitant]
  5. KLONOPIN [Concomitant]
  6. LAMICTAL [Concomitant]
  7. SEROQUEL [Concomitant]
  8. XANAX [Concomitant]
  9. GLUCOPHAGE [Concomitant]
  10. ALEVE [Concomitant]

REACTIONS (3)
  - ARTHRITIS [None]
  - BRONCHITIS [None]
  - PNEUMONIA [None]
